FAERS Safety Report 10430674 (Version 1)
Quarter: 2014Q3

REPORT INFORMATION
  Report Type: Spontaneous
  Country: US (occurrence: None)
  Receive Date: 20140903
  Receipt Date: 20140903
  Transmission Date: 20150326
  Serious: No
  Sender: FDA-Public Use
  Company Number: None

PATIENT
  Age: 7 Year
  Sex: Female
  Weight: 27.67 kg

DRUGS (2)
  1. ADDERALL XR CAPSULES [Concomitant]
  2. INTUNIV [Suspect]
     Active Substance: GUANFACINE HYDROCHLORIDE
     Indication: ATTENTION DEFICIT/HYPERACTIVITY DISORDER
     Dosage: 1 TAB PO QD
     Route: 048
     Dates: start: 20140522, end: 20140830

REACTIONS (6)
  - Screaming [None]
  - Mood altered [None]
  - Anxiety [None]
  - Aggression [None]
  - Self injurious behaviour [None]
  - Obsessive-compulsive disorder [None]

NARRATIVE: CASE EVENT DATE: 20140828
